FAERS Safety Report 19829760 (Version 1)
Quarter: 2021Q3

REPORT INFORMATION
  Report Type: Spontaneous
  Country: US (occurrence: US)
  Receive Date: 20210915
  Receipt Date: 20210915
  Transmission Date: 20211014
  Serious: No
  Sender: FDA-Public Use
  Company Number: US-AUROBINDO-AUR-APL-2021-026326

PATIENT
  Sex: Female

DRUGS (1)
  1. PAROXETINE TABLETS USP 10MG [Suspect]
     Active Substance: PAROXETINE
     Indication: ANXIETY
     Dosage: 20 MILLIGRAM, ONCE A DAY IN THE MORNING
     Route: 065

REACTIONS (3)
  - Drug ineffective [Unknown]
  - Illness [Unknown]
  - Abdominal discomfort [Unknown]
